FAERS Safety Report 5157156-5 (Version None)
Quarter: 2006Q4

REPORT INFORMATION
  Report Type: 
  Country: None (occurrence: None)
  Receive Date: 20061127
  Receipt Date: 20060920
  Transmission Date: 20070319
  Serious: Yes (Hospitalization, Disabling)
  Sender: FDA-Public Use
  Company Number: PHEH2006US11979

PATIENT
  Age: 66 Year
  Sex: Female

DRUGS (2)
  1. SANDOSTATIN LAR [Suspect]
     Indication: CARCINOID SYNDROME
     Dosage: 60 MG, QMO
     Dates: start: 20040101, end: 20050101
  2. SANDOSTATIN LAR [Suspect]
     Dosage: 30 MG, QMO
     Dates: start: 20011101

REACTIONS (10)
  - ABDOMINAL PAIN [None]
  - ADVERSE DRUG REACTION [None]
  - AUTOIMMUNE DISORDER [None]
  - BACK PAIN [None]
  - BLINDNESS [None]
  - CATARACT OPERATION [None]
  - INJECTION SITE REACTION [None]
  - NIGHT BLINDNESS [None]
  - PROCEDURAL COMPLICATION [None]
  - VITAMIN B12 DEFICIENCY [None]
